FAERS Safety Report 26160535 (Version 1)
Quarter: 2025Q4

REPORT INFORMATION
  Report Type: Spontaneous
  Country: US (occurrence: US)
  Receive Date: 20251216
  Receipt Date: 20251216
  Transmission Date: 20260119
  Serious: No
  Sender: ALVOGEN
  Company Number: US-ALVOGEN-2025096483

PATIENT
  Sex: Female

DRUGS (2)
  1. FENTANYL [Suspect]
     Active Substance: FENTANYL
     Indication: Product used for unknown indication
     Dosage: USED PREVIOUSLY
     Route: 062
  2. FENTANYL [Suspect]
     Active Substance: FENTANYL
     Indication: Product used for unknown indication
     Dosage: USED IN CURRENT
     Route: 062

REACTIONS (4)
  - Sinusitis [Unknown]
  - Pyrexia [Unknown]
  - Hypersensitivity [Unknown]
  - Product use issue [Unknown]
